FAERS Safety Report 10026767 (Version 1)
Quarter: 2014Q1

REPORT INFORMATION
  Report Type: Spontaneous
  Country: GB (occurrence: None)
  Receive Date: 20140318
  Receipt Date: 20140318
  Transmission Date: 20141002
  Serious: Yes (Other)
  Sender: FDA-Public Use
  Company Number: COL_15457_2014

PATIENT
  Age: 37 Year
  Sex: Female
  Weight: 70 kg

DRUGS (1)
  1. DURAPHAT [Suspect]
     Indication: SENSITIVITY OF TEETH
     Dosage: ( NI/NI/ORAL)
     Route: 048
     Dates: start: 20130320, end: 2013

REACTIONS (4)
  - Swollen tongue [None]
  - Tongue eruption [None]
  - Tongue discolouration [None]
  - Hypersensitivity [None]
